FAERS Safety Report 20578312 (Version 1)
Quarter: 2022Q1

REPORT INFORMATION
  Report Type: Spontaneous
  Country: US (occurrence: None)
  Receive Date: 20220310
  Receipt Date: 20220310
  Transmission Date: 20220424
  Serious: Yes (Death)
  Sender: FDA-Public Use
  Company Number: None

PATIENT
  Age: 89 Year

DRUGS (4)
  1. RAYALDEE [Suspect]
     Active Substance: CALCIFEDIOL
     Indication: Nephropathy
     Dosage: FREQUENCY : DAILY;?
     Route: 048
     Dates: start: 20210920, end: 20220114
  2. VELTASSA [Suspect]
     Active Substance: PATIROMER
     Indication: Hyperkalaemia
     Dosage: OTHER FREQUENCY : 4 X/WEEK;?
     Route: 048
     Dates: start: 20211026, end: 20220126
  3. ASPIRIN 81MG EC DR LOW DOSE TABLETS [Concomitant]
  4. AZELASTINE 0.1% (137MCG) NASAL-200SP [Concomitant]

REACTIONS (1)
  - Death [None]

NARRATIVE: CASE EVENT DATE: 20220222
